FAERS Safety Report 15596304 (Version 2)
Quarter: 2018Q4

REPORT INFORMATION
  Report Type: Report from Study
  Country: DE (occurrence: DE)
  Receive Date: 20181107
  Receipt Date: 20181210
  Transmission Date: 20190205
  Serious: Yes (Hospitalization)
  Sender: FDA-Public Use
  Company Number: PHHY2018DE147911

PATIENT

DRUGS (1)
  1. COSENTYX [Suspect]
     Active Substance: SECUKINUMAB
     Indication: PSORIASIS
     Dosage: 300 MG, UNK
     Route: 058
     Dates: start: 20180702, end: 20180705

REACTIONS (1)
  - Erysipelas [Recovered/Resolved]

NARRATIVE: CASE EVENT DATE: 20180930
